FAERS Safety Report 21385072 (Version 1)
Quarter: 2022Q3

REPORT INFORMATION
  Report Type: Spontaneous
  Country: NL (occurrence: NL)
  Receive Date: 20220928
  Receipt Date: 20220928
  Transmission Date: 20221026
  Serious: Yes (Hospitalization, Other)
  Sender: FDA-Public Use
  Company Number: NL-ALVOGEN-2022-ALVOGEN-120936

PATIENT
  Age: 31 Year
  Sex: Female

DRUGS (2)
  1. VENLAFAXINE [Suspect]
     Active Substance: VENLAFAXINE HYDROCHLORIDE
     Indication: Depression
     Dosage: INTENTIONALLY INGESTED 120 EXTENDED RELEASE CAPSULES OF 150 MG
  2. RIVAROXABAN [Concomitant]
     Active Substance: RIVAROXABAN
     Indication: Product used for unknown indication

REACTIONS (5)
  - Intentional overdose [Unknown]
  - Multiple organ dysfunction syndrome [Unknown]
  - Suicide attempt [Unknown]
  - Serotonin syndrome [Recovering/Resolving]
  - Electrocardiogram QT prolonged [Unknown]
